FAERS Safety Report 15959365 (Version 1)
Quarter: 2019Q1

REPORT INFORMATION
  Report Type: Spontaneous
  Country: RO (occurrence: RO)
  Receive Date: 20190214
  Receipt Date: 20190214
  Transmission Date: 20190417
  Serious: Yes (Life-Threatening)
  Sender: FDA-Public Use
  Company Number: RO-009507513-1902ROM003085

PATIENT
  Age: 68 Year
  Sex: Female

DRUGS (7)
  1. CONCOR [Concomitant]
     Active Substance: BISOPROLOL FUMARATE
     Indication: HYPERTENSION
     Dosage: 1 TABLET/DAY
     Route: 048
  2. ANXIAR [Concomitant]
     Active Substance: LORAZEPAM
     Indication: DEPRESSION
     Dosage: 1/DAY
     Route: 048
  3. ESCITALOPRAM [Concomitant]
     Active Substance: ESCITALOPRAM OXALATE
     Indication: DEPRESSION
     Dosage: 1/DAY
     Route: 048
  4. OLANZAPINE. [Concomitant]
     Active Substance: OLANZAPINE
     Indication: DEPRESSION
     Dosage: 1/DAY
     Route: 048
  5. ZEPATIER [Suspect]
     Active Substance: ELBASVIR\GRAZOPREVIR
     Indication: HEPATITIS
     Dosage: 1 TABLET/DAY
     Route: 048
     Dates: start: 20181203, end: 20181204
  6. PREDUCTAL MR [Concomitant]
     Active Substance: TRIMETAZIDINE DIHYDROCHLORIDE
     Indication: HYPERTENSION
     Dosage: 1/DAY
     Route: 048
  7. LORISTA [Concomitant]
     Active Substance: LOSARTAN POTASSIUM
     Indication: HYPERTENSION
     Dosage: UNK

REACTIONS (5)
  - Headache [Recovered/Resolved]
  - Agitation [Recovered/Resolved]
  - Eye swelling [Recovered/Resolved]
  - Skin wrinkling [Recovered/Resolved]
  - Nervousness [Recovered/Resolved]

NARRATIVE: CASE EVENT DATE: 20181204
